FAERS Safety Report 4681964-8 (Version None)
Quarter: 2005Q2

REPORT INFORMATION
  Report Type: 
  Country: None (occurrence: None)
  Receive Date: 20050606
  Receipt Date: 20050207
  Transmission Date: 20051028
  Serious: Yes (Other)
  Sender: FDA-Public Use
  Company Number: JP-SP-2005-00468

PATIENT
  Age: 75 Year
  Sex: Male

DRUGS (2)
  1. IMMUCYST [Suspect]
     Indication: BLADDER CANCER
     Dosage: TOTAL DOSE 324 MG
     Route: 043
     Dates: start: 20050112, end: 20050209
  2. IMMUCYST [Suspect]
     Dosage: TOTAL DOSE 324 MG
     Route: 043
     Dates: start: 20050112, end: 20050209

REACTIONS (3)
  - BLADDER CONSTRICTION [None]
  - PYREXIA [None]
  - VESICAL TENESMUS [None]
